FAERS Safety Report 22201347 (Version 2)
Quarter: 2023Q2

REPORT INFORMATION
  Report Type: Report from Study
  Country: CA (occurrence: CA)
  Receive Date: 20230412
  Receipt Date: 20230524
  Transmission Date: 20230721
  Serious: Yes (Hospitalization, Other)
  Sender: FDA-Public Use
  Company Number: CA-BoehringerIngelheim-2022-BI-196147

PATIENT
  Age: 82 Year
  Sex: Female

DRUGS (2)
  1. OFEV [Suspect]
     Active Substance: NINTEDANIB
     Indication: Idiopathic pulmonary fibrosis
     Dosage: 100MG BID
     Route: 048
     Dates: start: 202209, end: 20230401
  2. OFEV [Suspect]
     Active Substance: NINTEDANIB
     Route: 048

REACTIONS (7)
  - Vomiting [Recovered/Resolved]
  - Nasopharyngitis [Recovered/Resolved]
  - Cerebrovascular accident [Recovered/Resolved]
  - Weight increased [Not Recovered/Not Resolved]
  - Abdominal pain upper [Unknown]
  - Hypertension [Recovering/Resolving]
  - Herpes zoster [Not Recovered/Not Resolved]

NARRATIVE: CASE EVENT DATE: 20221005
